FAERS Safety Report 6044638-7 (Version None)
Quarter: 2009Q1

REPORT INFORMATION
  Report Type: 
  Country: None (occurrence: None)
  Receive Date: 20090120
  Receipt Date: 20090113
  Transmission Date: 20090719
  Serious: Yes (Other)
  Sender: FDA-Public Use
  Company Number: US-BIOGENIDEC-2009BI001431

PATIENT
  Age: 77 Year
  Sex: Female

DRUGS (2)
  1. TYSABRI [Suspect]
     Indication: MULTIPLE SCLEROSIS
     Route: 042
     Dates: start: 20050127, end: 20050228
  2. TYSABRI [Suspect]
     Route: 042
     Dates: start: 20080918

REACTIONS (3)
  - HAEMOCHROMATOSIS [None]
  - HYPERSENSITIVITY [None]
  - MENTAL IMPAIRMENT [None]
